FAERS Safety Report 5001555-9 (Version None)
Quarter: 2006Q2

REPORT INFORMATION
  Report Type: 
  Country: None (occurrence: None)
  Receive Date: 20060515
  Receipt Date: 20060427
  Transmission Date: 20061013
  Serious: No
  Sender: FDA-Public Use
  Company Number: PHNU2006DE01796

PATIENT
  Age: 56 Year
  Sex: Male

DRUGS (6)
  1. PROVAS COMP [Suspect]
     Indication: HYPERTENSION
     Dosage: 1 DF, QD
     Route: 048
  2. ACETYLSALICYLIC ACID SRT [Concomitant]
     Dosage: 100 MG/D
     Route: 048
  3. TORSEMIDE [Concomitant]
     Indication: HYPERTENSION
     Dosage: 0.5 DF/WEEK IF NECESSARY
     Route: 048
  4. URAPIDIL [Concomitant]
     Indication: HYPERTENSION
     Dosage: 60 MG, TID
     Route: 048
     Dates: start: 20060421
  5. PROPRANOLOL [Concomitant]
     Dosage: 40 MG, BID
     Route: 048
  6. MOXONIDINE [Concomitant]
     Indication: HYPERTENSION
     Dates: end: 20060421

REACTIONS (5)
  - BLOOD ANTIDIURETIC HORMONE DECREASED [None]
  - BLOOD OSMOLARITY INCREASED [None]
  - OEDEMA [None]
  - THIRST [None]
  - WEIGHT INCREASED [None]
